FAERS Safety Report 8763464 (Version 4)
Quarter: 2013Q4

REPORT INFORMATION
  Report Type: Spontaneous
  Country: US (occurrence: US)
  Receive Date: 20120831
  Receipt Date: 20131206
  Transmission Date: 20140711
  Serious: Yes (Death, Hospitalization)
  Sender: FDA-Public Use
  Company Number: US-BIOGENIDEC-2012BI033065

PATIENT
  Age: 68 Year
  Sex: Female

DRUGS (8)
  1. TYSABRI [Suspect]
     Indication: MULTIPLE SCLEROSIS
     Route: 042
     Dates: start: 20070510, end: 20120117
  2. LEXAPRO [Concomitant]
  3. CELEBREX [Concomitant]
  4. LEVOTHYROXINE [Concomitant]
  5. EVISTA [Concomitant]
  6. ASA [Concomitant]
  7. BACLOFEN [Concomitant]
  8. TRANDOLAPRIL [Concomitant]

REACTIONS (1)
  - Breast cancer metastatic [Fatal]
